FAERS Safety Report 6657029-2 (Version None)
Quarter: 2010Q1

REPORT INFORMATION
  Report Type: 
  Country: None (occurrence: None)
  Receive Date: 20100329
  Receipt Date: 20100329
  Transmission Date: 20100710
  Serious: Yes (Disabling)
  Sender: FDA-Public Use
  Company Number: None

PATIENT
  Sex: Female
  Weight: 79.3795 kg

DRUGS (2)
  1. ALENDRONATE SODIUM [Suspect]
     Indication: OSTEOPENIA
     Dosage: 70 MG ONCE WEEKLY
     Dates: start: 19990101, end: 20100304
  2. FOSAMAX [Suspect]
     Dosage: 70 MG ONCE WEEKLY

REACTIONS (2)
  - ARTHRITIS [None]
  - FEMUR FRACTURE [None]
